FAERS Safety Report 19551260 (Version 1)
Quarter: 2021Q3

REPORT INFORMATION
  Report Type: Spontaneous
  Country: US (occurrence: US)
  Receive Date: 20210715
  Receipt Date: 20210715
  Transmission Date: 20211014
  Serious: Yes (Hospitalization)
  Sender: FDA-Public Use
  Company Number: None

PATIENT
  Sex: Female

DRUGS (1)
  1. HUMIRA [Suspect]
     Active Substance: ADALIMUMAB
     Indication: CROHN^S DISEASE
     Dosage: OTHER FREQUENCY:WEEKLY;?
     Route: 058
     Dates: start: 20210121

REACTIONS (4)
  - Crohn^s disease [None]
  - Abdominal pain upper [None]
  - Diarrhoea [None]
  - Weight fluctuation [None]
